FAERS Safety Report 10007384 (Version 1)
Quarter: 2014Q1

REPORT INFORMATION
  Report Type: Spontaneous
  Country: BR (occurrence: BR)
  Receive Date: 20140313
  Receipt Date: 20140313
  Transmission Date: 20141002
  Serious: Yes (Other)
  Sender: FDA-Public Use
  Company Number: BR-ASTRAZENECA-2014SE16296

PATIENT
  Age: 62 Year
  Sex: Male

DRUGS (2)
  1. BRILINTA [Suspect]
     Indication: ANTIPLATELET THERAPY
     Route: 048
  2. ANTIHYPERTENSIVE [Concomitant]
     Indication: HYPERTENSION
     Route: 048

REACTIONS (1)
  - Thrombocytopenia [Recovered/Resolved]
